FAERS Safety Report 9747628 (Version 3)
Quarter: 2014Q1

REPORT INFORMATION
  Report Type: Spontaneous
  Country: US (occurrence: None)
  Receive Date: 20131205
  Receipt Date: 20140321
  Transmission Date: 20141002
  Serious: Yes (Other)
  Sender: FDA-Public Use
  Company Number: ADR-2013-01756

PATIENT
  Sex: Male

DRUGS (1)
  1. LIORESAL [Suspect]
     Indication: MUSCLE SPASTICITY
     Dosage: SEE B5

REACTIONS (7)
  - Device related infection [None]
  - Medical device site reaction [None]
  - Implant site infection [None]
  - Skin disorder [None]
  - Implant site vesicles [None]
  - Implant site irritation [None]
  - Device occlusion [None]
